FAERS Safety Report 5743984-1 (Version None)
Quarter: 2008Q2

REPORT INFORMATION
  Report Type: 
  Country: None (occurrence: None)
  Receive Date: 20080516
  Receipt Date: 20080516
  Transmission Date: 20081010
  Serious: Yes (Other)
  Sender: FDA-Public Use
  Company Number: None

PATIENT
  Sex: Male
  Weight: 80.7403 kg

DRUGS (1)
  1. DIGITEK .25MG ACTAVIS/MYLAN PHARMACEUTICALS [Suspect]
     Dosage: 1 TABLET DAILY

REACTIONS (5)
  - ASTHENIA [None]
  - HEART RATE DECREASED [None]
  - MALAISE [None]
  - PHARMACEUTICAL PRODUCT COMPLAINT [None]
  - SYNCOPE [None]
